FAERS Safety Report 10826497 (Version 1)
Quarter: 2015Q1

REPORT INFORMATION
  Report Type: Report from Study
  Country: NL (occurrence: NL)
  Receive Date: 20150219
  Receipt Date: 20150219
  Transmission Date: 20150721
  Serious: Yes (Other)
  Sender: FDA-Public Use
  Company Number: NL-AMGEN-NLDSL2012087148

PATIENT
  Age: 40 Year
  Sex: Female

DRUGS (1)
  1. NEULASTA [Suspect]
     Active Substance: PEGFILGRASTIM
     Indication: PRODUCT USED FOR UNKNOWN INDICATION
     Dosage: 6 MG, Q3WKS
     Route: 058
     Dates: start: 20120209, end: 20120524

REACTIONS (2)
  - Haematuria [Recovered/Resolved]
  - Urine abnormality [Unknown]

NARRATIVE: CASE EVENT DATE: 20120307
